FAERS Safety Report 6271562-7 (Version None)
Quarter: 2009Q3

REPORT INFORMATION
  Report Type: 
  Country: None (occurrence: None)
  Receive Date: 20090717
  Receipt Date: 20070910
  Transmission Date: 20100115
  Serious: Yes (Hospitalization)
  Sender: FDA-Public Use
  Company Number: US-PFIZER INC-2005105716

PATIENT
  Sex: Male
  Weight: 63.05 kg

DRUGS (13)
  1. BLINDED *NO SUBJECT DRUG [Suspect]
     Indication: HIV INFECTION
     Dosage: UNK
     Route: 048
     Dates: start: 20050210, end: 20050419
  2. BLINDED *PLACEBO [Suspect]
     Indication: HIV INFECTION
     Dosage: UNK
     Route: 048
     Dates: start: 20050210, end: 20050419
  3. BLINDED MARAVIROC [Suspect]
     Indication: HIV INFECTION
     Dosage: UNK
     Route: 048
     Dates: start: 20050210, end: 20050419
  4. AZITHROMYCIN [Concomitant]
     Route: 048
     Dates: start: 19990720
  5. ETHAMBUTOL DIHYDROCHLORIDE [Concomitant]
     Route: 048
     Dates: start: 19990720
  6. FLUCONAZOLE [Concomitant]
     Route: 048
     Dates: start: 20000810
  7. DAPSONE [Concomitant]
     Route: 048
     Dates: start: 19990920
  8. OMEPRAZOLE [Concomitant]
     Route: 048
     Dates: start: 20000124
  9. MULTI-VITAMINS [Concomitant]
     Route: 048
     Dates: start: 20010710
  10. MIRTAZAPINE [Concomitant]
     Route: 048
     Dates: start: 20031028
  11. TAMSULOSIN HCL [Concomitant]
     Route: 048
     Dates: start: 20031028
  12. DRONABINOL [Concomitant]
     Route: 048
     Dates: start: 20050214
  13. IBUPROFEN [Concomitant]
     Dosage: AS NEEDED
     Route: 048
     Dates: start: 20020512

REACTIONS (1)
  - LUNG NEOPLASM [None]
